FAERS Safety Report 8791195 (Version 1)
Quarter: 2012Q4

REPORT INFORMATION
  Report Type: Spontaneous
  Country: JP (occurrence: None)
  Receive Date: 20120911
  Receipt Date: 20120911
  Transmission Date: 20130627
  Serious: Yes (Hospitalization, Other)
  Sender: FDA-Public Use
  Company Number: VAL_00820_2012

PATIENT
  Age: 36 Year
  Sex: Male

DRUGS (3)
  1. CARBAMAZEPINE [Suspect]
     Indication: TRIGEMINAL NEURALGIA
  2. CARBAMAZEPINE [Suspect]
     Indication: FACIAL PAIN
  3. CARBAMAZEPINE [Suspect]
     Indication: HEADACHE

REACTIONS (2)
  - Tremor [None]
  - Central nervous system lesion [None]
